FAERS Safety Report 4753375-8 (Version None)
Quarter: 2005Q3

REPORT INFORMATION
  Report Type: 
  Country: None (occurrence: None)
  Receive Date: 20050824
  Receipt Date: 20050815
  Transmission Date: 20060218
  Serious: Yes (Other)
  Sender: FDA-Public Use
  Company Number: 2005-08-1065

PATIENT
  Sex: Female

DRUGS (2)
  1. CLARINEX D 24 HOUR [Suspect]
     Dosage: ORAL
     Route: 048
     Dates: start: 20050805
  2. CLARINEX D 24 HOUR [Suspect]

REACTIONS (4)
  - ABDOMINAL PAIN UPPER [None]
  - FOREIGN BODY TRAUMA [None]
  - NAUSEA [None]
  - PHARMACEUTICAL PRODUCT COMPLAINT [None]
